FAERS Safety Report 10437760 (Version 2)
Quarter: 2014Q3

REPORT INFORMATION
  Report Type: Spontaneous
  Country: US (occurrence: US)
  Receive Date: 20140908
  Receipt Date: 20140908
  Transmission Date: 20150326
  Serious: Yes (Other)
  Sender: FDA-Public Use
  Company Number: US-BRISTOL-MYERS SQUIBB COMPANY-19783554

PATIENT
  Age: 48 Year
  Sex: Female

DRUGS (4)
  1. ABILIFY [Suspect]
     Active Substance: ARIPIPRAZOLE
     Indication: AFFECTIVE DISORDER
     Dosage: STARTED AT 1 MG ON 23-SEP-2013
     Route: 048
     Dates: start: 20130927
  2. CLONAZEPAM. [Concomitant]
     Active Substance: CLONAZEPAM
     Route: 048
  3. BUPROPION [Concomitant]
     Active Substance: BUPROPION
     Dates: start: 20130907
  4. ABILIFY [Suspect]
     Active Substance: ARIPIPRAZOLE
     Indication: BORDERLINE PERSONALITY DISORDER
     Dosage: STARTED AT 1 MG ON 23-SEP-2013
     Route: 048
     Dates: start: 20130927

REACTIONS (6)
  - Clumsiness [Unknown]
  - Off label use [Unknown]
  - Suicidal ideation [Unknown]
  - Depression [Unknown]
  - Akathisia [Unknown]
  - Sedation [Unknown]

NARRATIVE: CASE EVENT DATE: 201310
